FAERS Safety Report 9800172 (Version 3)
Quarter: 2014Q3

REPORT INFORMATION
  Report Type: Spontaneous
  Country: US (occurrence: US)
  Receive Date: 20140106
  Receipt Date: 20140820
  Transmission Date: 20150326
  Serious: No
  Sender: FDA-Public Use
  Company Number: US-009507513-1401USA000816

PATIENT
  Sex: Female
  Weight: 112.47 kg

DRUGS (1)
  1. NUVARING [Suspect]
     Active Substance: ETHINYL ESTRADIOL\ETONOGESTREL
     Indication: MENSTRUATION IRREGULAR
     Dosage: 0.12MG/0.015MG/24 HR 1 RING Q 28 DAYS, REMOVE AFTER 21 DYAS, INSERT NEW RING 7 DAYS LATER
     Route: 067
     Dates: start: 20080512, end: 20091214

REACTIONS (5)
  - Deep vein thrombosis [Unknown]
  - Thrombophlebitis superficial [Unknown]
  - Thrombophlebitis superficial [Not Recovered/Not Resolved]
  - Deep vein thrombosis [Unknown]
  - Off label use [Unknown]

NARRATIVE: CASE EVENT DATE: 20091214
